FAERS Safety Report 5828670-1 (Version None)
Quarter: 2008Q3

REPORT INFORMATION
  Report Type: 
  Country: None (occurrence: None)
  Receive Date: 20080731
  Receipt Date: 20080730
  Transmission Date: 20090109
  Serious: Yes (Hospitalization, Other)
  Sender: FDA-Public Use
  Company Number: FR-RB-002574-08

PATIENT
  Age: 28 Year
  Sex: Male

DRUGS (2)
  1. SUBUTEX [Suspect]
     Indication: DRUG USE FOR UNKNOWN INDICATION
     Dosage: UNKNOWN DOSE
     Route: 042
     Dates: end: 20080310
  2. MORPHINE [Suspect]
     Indication: DRUG USE FOR UNKNOWN INDICATION
     Dosage: UNKNOWN DOSE.
     Route: 042
     Dates: end: 20080310

REACTIONS (11)
  - DYSPNOEA [None]
  - ENDOCARDITIS [None]
  - HYPERTHERMIA [None]
  - INCORRECT ROUTE OF DRUG ADMINISTRATION [None]
  - INJECTION SITE ULCER [None]
  - LUNG DISORDER [None]
  - PAIN [None]
  - SEPSIS [None]
  - SEPTIC EMBOLUS [None]
  - SUBSTANCE ABUSE [None]
  - WITHDRAWAL SYNDROME [None]
